FAERS Safety Report 14709599 (Version 1)
Quarter: 2018Q2

REPORT INFORMATION
  Report Type: Spontaneous
  Country: DK (occurrence: DK)
  Receive Date: 20180403
  Receipt Date: 20180403
  Transmission Date: 20180711
  Serious: Yes (Hospitalization, Disabling)
  Sender: FDA-Public Use
  Company Number: DK-ROCHE-2081237

PATIENT
  Age: 77 Year
  Sex: Male

DRUGS (2)
  1. ACTILYSE [Suspect]
     Active Substance: ALTEPLASE
     Indication: ISCHAEMIC STROKE
     Dosage: AT 09:45 HOURS
     Route: 040
     Dates: start: 20171220, end: 20171220
  2. METOPROLOL TARTRATE. [Concomitant]
     Active Substance: METOPROLOL TARTRATE
     Indication: ARRHYTHMIA
     Dosage: STRENGTH: 50 MG
     Route: 048
     Dates: start: 20130204

REACTIONS (3)
  - Dysarthria [Unknown]
  - Haemorrhage intracranial [Unknown]
  - Monoparesis [Unknown]

NARRATIVE: CASE EVENT DATE: 20171220
